FAERS Safety Report 16692437 (Version 1)
Quarter: 2019Q3

REPORT INFORMATION
  Report Type: Report from Study
  Country: BR (occurrence: BR)
  Receive Date: 20190812
  Receipt Date: 20190812
  Transmission Date: 20191004
  Serious: Yes (Other)
  Sender: FDA-Public Use
  Company Number: PHHY2019BR187327

PATIENT
  Sex: Male

DRUGS (2)
  1. ENTRESTO [Suspect]
     Active Substance: SACUBITRIL\VALSARTAN
     Indication: BLOOD PRESSURE MEASUREMENT
     Dosage: 100 MG (49 MG SACUBITRIL/ 51 MG VALSARTAN), UNK
     Route: 065
  2. ENTRESTO [Suspect]
     Active Substance: SACUBITRIL\VALSARTAN
     Dosage: 200 MG ( 97 MG SACUBITRIL/ 103 MG VALSARTAN), UNK
     Route: 065

REACTIONS (4)
  - Myocardial infarction [Unknown]
  - Product use in unapproved indication [Unknown]
  - Renal failure [Unknown]
  - Cardiac failure [Unknown]
